FAERS Safety Report 4842811-4 (Version None)
Quarter: 2005Q4

REPORT INFORMATION
  Report Type: 
  Country: None (occurrence: None)
  Receive Date: 20051130
  Receipt Date: 20051123
  Transmission Date: 20060501
  Serious: Yes (Hospitalization)
  Sender: FDA-Public Use
  Company Number: 2005RR-01208

PATIENT
  Age: 35 Year
  Sex: Male

DRUGS (2)
  1. ASPIRIN [Suspect]
     Indication: PAIN
     Dosage: 300 MG, SINGLE, ORAL
     Route: 048
     Dates: start: 20051027, end: 20051027
  2. IBUPROFEN [Suspect]
     Indication: PAIN
     Dosage: 400 MG, SINGLE, ORAL
     Route: 048
     Dates: start: 20051027, end: 20051027

REACTIONS (3)
  - ALCOHOL USE [None]
  - GASTROINTESTINAL HAEMORRHAGE [None]
  - HAEMATEMESIS [None]
